FAERS Safety Report 5104579-6 (Version None)
Quarter: 2006Q3

REPORT INFORMATION
  Report Type: 
  Country: None (occurrence: None)
  Receive Date: 20060914
  Receipt Date: 20050918
  Transmission Date: 20061208
  Serious: No
  Sender: FDA-Public Use
  Company Number: US-BRISTOL-MYERS SQUIBB COMPANY-13116470

PATIENT
  Age: 66 Year
  Sex: Male

DRUGS (2)
  1. BUSPAR [Suspect]
  2. MIRTAZAPINE [Concomitant]
     Indication: SLEEP DISORDER
     Route: 048

REACTIONS (2)
  - PANIC ATTACK [None]
  - SUPRAVENTRICULAR EXTRASYSTOLES [None]
